FAERS Safety Report 8423060-X (Version None)
Quarter: 2012Q2

REPORT INFORMATION
  Report Type: 
  Country: None (occurrence: None)
  Receive Date: 20120608
  Receipt Date: 20120604
  Transmission Date: 20120825
  Serious: Yes (Other)
  Sender: FDA-Public Use
  Company Number: PHEH2012US011330

PATIENT
  Sex: Female

DRUGS (42)
  1. SKELAXIN [Suspect]
  2. ELAVIL [Suspect]
  3. PROZAC [Suspect]
  4. REGLAN [Suspect]
  5. ASPIRIN [Concomitant]
     Dosage: 81 MG, QD
     Route: 048
  6. TEGRETOL [Suspect]
  7. DEPAKOTE [Suspect]
  8. STEROIDS NOS [Suspect]
  9. ZONEGRAN [Suspect]
  10. MAO INHIBITORS [Suspect]
  11. PAMELOR [Suspect]
  12. PAXIL [Suspect]
  13. REQUIP [Suspect]
  14. SINEQUAN [Suspect]
  15. ABILIFY [Suspect]
  16. REMERON [Suspect]
  17. TOFRANIL [Suspect]
  18. BUSPAR [Suspect]
  19. CALTRATE +D [Concomitant]
     Dosage: 400 MG, BID
     Route: 048
  20. ONE A DAY [Concomitant]
     Dosage: 1 DF, QD
     Route: 048
  21. TOPAMAX [Suspect]
  22. IMITREX [Suspect]
  23. DARVOCET-N 50 [Suspect]
  24. SEROQUEL [Suspect]
  25. TIZANIDINE HYDROCHLORIDE [Suspect]
  26. ADDERALL 5 [Suspect]
  27. NEURONTIN [Suspect]
  28. BETA BLOCKING AGENTS [Suspect]
  29. DESYREL [Suspect]
  30. ZOLOFT [Suspect]
  31. RITALIN [Suspect]
  32. TRILEPTAL [Suspect]
  33. VALIUM [Suspect]
     Indication: AGITATION
  34. LUNESTA [Suspect]
  35. DAYTRANA [Suspect]
  36. ERYTHROMYCIN [Suspect]
  37. EFFEXOR [Suspect]
  38. ANTIDEPRESSANTS [Suspect]
  39. WELLBUTRIN [Suspect]
  40. ZYPREXA [Suspect]
  41. VITAMIN B-COMPLEX, OTHER COMBINATIONS [Concomitant]
     Dosage: 1 DF, QD
     Route: 048
  42. ENSURE [Concomitant]
     Dosage: 1 CAN, QD
     Route: 048

REACTIONS (12)
  - WEIGHT INCREASED [None]
  - CONVULSION [None]
  - CHEST PAIN [None]
  - TOXICITY TO VARIOUS AGENTS [None]
  - CONFUSIONAL STATE [None]
  - RASH [None]
  - DRUG INEFFECTIVE [None]
  - BIPOLAR DISORDER [None]
  - NIGHTMARE [None]
  - AGITATION [None]
  - HYPERGLYCAEMIA [None]
  - TREMOR [None]
